FAERS Safety Report 9848970 (Version 1)
Quarter: 2013Q4

REPORT INFORMATION
  Report Type: Spontaneous
  Country: US (occurrence: None)
  Receive Date: 20131224
  Receipt Date: 20131224
  Transmission Date: 20140711
  Serious: Yes (Hospitalization)
  Sender: FDA-Public Use
  Company Number: PHEH2013US019730

PATIENT
  Age: 16 Year
  Sex: Male

DRUGS (2)
  1. FOCALIN XR (DEXMETHYLPHENIDATE HYDROCHLORIDE) EXTENDED RELEASE CAPSULES [Suspect]
     Indication: ATTENTION DEFICIT/HYPERACTIVITY DISORDER
     Dates: start: 20130725
  2. WELLBUTRIN (BUPROPION HYDROCHLORIDE) [Concomitant]

REACTIONS (7)
  - Heart rate increased [None]
  - Dizziness [None]
  - Hypoaesthesia [None]
  - Feeling abnormal [None]
  - Decreased interest [None]
  - Arrhythmia [None]
  - Blood pressure decreased [None]
